FAERS Safety Report 4824220-7 (Version None)
Quarter: 2005Q4

REPORT INFORMATION
  Report Type: 
  Country: None (occurrence: None)
  Receive Date: 20051108
  Receipt Date: 20051025
  Transmission Date: 20060501
  Serious: Yes (Hospitalization)
  Sender: FDA-Public Use
  Company Number: USA0508104322

PATIENT
  Age: 84 Year
  Sex: Female

DRUGS (6)
  1. FORTEO [Suspect]
     Indication: OSTEOPOROSIS
     Dosage: 20 UG DAY
     Dates: start: 20041001
  2. ZANTAC [Concomitant]
  3. DIOVAN [Concomitant]
  4. HCT (HYDROCHLOROTHIAZIDE) [Concomitant]
  5. ACETYLSALICYLIC ACID SRT [Concomitant]
  6. ALPRAZOLAM [Concomitant]

REACTIONS (6)
  - DIZZINESS [None]
  - HYPOKALAEMIA [None]
  - HYPONATRAEMIA [None]
  - INCORRECT DOSE ADMINISTERED [None]
  - ORTHOSTATIC HYPOTENSION [None]
  - SYNCOPE [None]
